FAERS Safety Report 19386051 (Version 1)
Quarter: 2021Q2

REPORT INFORMATION
  Report Type: Spontaneous
  Country: US (occurrence: US)
  Receive Date: 20210605
  Receipt Date: 20210605
  Transmission Date: 20210717
  Serious: No
  Sender: FDA-Public Use
  Company Number: None

PATIENT
  Age: 66 Year
  Sex: Female
  Weight: 97.65 kg

DRUGS (6)
  1. ALBUTEROL SULFATE INHALER [Concomitant]
     Active Substance: ALBUTEROL SULFATE
  2. IRBESARTAN. [Concomitant]
     Active Substance: IRBESARTAN
  3. GLIMEPIRIDE. [Concomitant]
     Active Substance: GLIMEPIRIDE
  4. PRIMATENE MIST [Concomitant]
     Active Substance: EPINEPHRINE
  5. ALBUTEROL SULFATE INHALATION AEROSOL [Suspect]
     Active Substance: ALBUTEROL SULFATE
     Indication: ASTHMA
     Dosage: ?          QUANTITY:1 PUFF(S);OTHER FREQUENCY:UPTO 6 TIMES A DAY;?
     Route: 055
  6. AMLODIPINE [Concomitant]
     Active Substance: AMLODIPINE BESYLATE

REACTIONS (3)
  - Drug delivery system malfunction [None]
  - Product size issue [None]
  - Incorrect dose administered by device [None]

NARRATIVE: CASE EVENT DATE: 20210502
